FAERS Safety Report 17866825 (Version 1)
Quarter: 2020Q2

REPORT INFORMATION
  Report Type: Spontaneous
  Country: US (occurrence: US)
  Receive Date: 20200605
  Receipt Date: 20200605
  Transmission Date: 20200714
  Serious: Yes (Other)
  Sender: FDA-Public Use
  Company Number: US-009507513-2005USA009105

PATIENT
  Age: 74 Year
  Sex: Female

DRUGS (3)
  1. DIVALPROEX SODIUM. [Suspect]
     Active Substance: DIVALPROEX SODIUM
     Dosage: 500 MILLIGRAM, BID
     Route: 048
  2. OLANZAPINE. [Suspect]
     Active Substance: OLANZAPINE
     Dosage: 10 MILLIGRAM, BID
     Route: 048
  3. REMERON [Suspect]
     Active Substance: MIRTAZAPINE
     Indication: MENTAL STATUS CHANGES
     Dosage: 7.5 MILLIGRAM, QPM
     Route: 048

REACTIONS (1)
  - Delirium [Unknown]
